FAERS Safety Report 11410928 (Version 1)
Quarter: 2015Q3

REPORT INFORMATION
  Report Type: Spontaneous
  Country: DK (occurrence: FR)
  Receive Date: 20150824
  Receipt Date: 20150824
  Transmission Date: 20151125
  Serious: Yes (Hospitalization)
  Sender: FDA-Public Use
  Company Number: FR-FRI-1000079073

PATIENT
  Age: 36 Year
  Sex: Female

DRUGS (7)
  1. PROGLICEM [Suspect]
     Active Substance: DIAZOXIDE
     Dosage: 175 MG
     Route: 048
     Dates: start: 20150523
  2. THERALENE [Suspect]
     Active Substance: TRIMEPRAZINE
     Indication: PRODUCT USED FOR UNKNOWN INDICATION
     Dosage: 10 DROPS/DAY IF NEEDED (AT BEDTIME)
     Route: 048
  3. PARACETAMOL [Suspect]
     Active Substance: ACETAMINOPHEN
     Indication: PAIN
     Route: 048
  4. PROGLICEM [Suspect]
     Active Substance: DIAZOXIDE
     Indication: INSULINOMA
     Dosage: 175 MCG
     Route: 048
     Dates: start: 20150507, end: 20150511
  5. ESCITALOPRAM [Suspect]
     Active Substance: ESCITALOPRAM OXALATE
     Indication: PRODUCT USED FOR UNKNOWN INDICATION
     Route: 048
  6. PROGLICEM [Suspect]
     Active Substance: DIAZOXIDE
     Dosage: 550 MCG
     Route: 048
     Dates: start: 20150512, end: 20150522
  7. LEXOMIL ROCHE [Suspect]
     Active Substance: BROMAZEPAM
     Indication: ANXIETY
     Dosage: 3 MG/DAY IF NEEDED (AT BEDTIME)
     Route: 065

REACTIONS (2)
  - Rash erythematous [Recovering/Resolving]
  - Photosensitivity reaction [Recovering/Resolving]

NARRATIVE: CASE EVENT DATE: 20150528
